FAERS Safety Report 8911112 (Version 2)
Quarter: 2013Q1

REPORT INFORMATION
  Report Type: Spontaneous
  Country: US (occurrence: US)
  Receive Date: 20121116
  Receipt Date: 20130126
  Transmission Date: 20140127
  Serious: No
  Sender: FDA-Public Use
  Company Number: US-009507513-1211USA005895

PATIENT
  Age: 55 Year
  Sex: Male

DRUGS (3)
  1. JANUMET [Suspect]
     Indication: DIABETES MELLITUS
     Dosage: 1000 MG/50 MG
     Route: 048
     Dates: start: 20121002
  2. DIOVAN [Concomitant]
  3. ACTOSE [Concomitant]

REACTIONS (3)
  - Nervousness [Recovered/Resolved]
  - Confusional state [Recovered/Resolved]
  - Blood glucose decreased [Recovered/Resolved]
